FAERS Safety Report 17951240 (Version 1)
Quarter: 2020Q2

REPORT INFORMATION
  Report Type: Spontaneous
  Country: US (occurrence: US)
  Receive Date: 20200626
  Receipt Date: 20200626
  Transmission Date: 20200714
  Serious: No
  Sender: FDA-Public Use
  Company Number: US-SA-2020SA002689

PATIENT

DRUGS (18)
  1. PRALUENT [Suspect]
     Active Substance: ALIROCUMAB
     Indication: TYPE V HYPERLIPIDAEMIA
     Dosage: 150 MG,QOW
     Route: 058
  2. DETROL [Concomitant]
     Active Substance: TOLTERODINE TARTRATE
  3. HYDROCODONE/ACETAMINOPHEN [Concomitant]
     Active Substance: ACETAMINOPHEN\HYDROCODONE
  4. ZYRTEC [Concomitant]
     Active Substance: CETIRIZINE HYDROCHLORIDE
  5. PRALUENT [Suspect]
     Active Substance: ALIROCUMAB
     Indication: HYPERLIPIDAEMIA
     Dosage: 75 MG, QOW
     Route: 058
     Dates: start: 20180726
  6. ROSUVASTATIN CALCIUM. [Concomitant]
     Active Substance: ROSUVASTATIN CALCIUM
  7. VITAMIN D3 [Concomitant]
     Active Substance: CHOLECALCIFEROL
  8. BRILINTA [Concomitant]
     Active Substance: TICAGRELOR
  9. FUROSEMIDE. [Concomitant]
     Active Substance: FUROSEMIDE
  10. OMEPRAZOLE. [Concomitant]
     Active Substance: OMEPRAZOLE
  11. RANEXA [Concomitant]
     Active Substance: RANOLAZINE
  12. BONIVA [Concomitant]
     Active Substance: IBANDRONATE SODIUM
  13. TOPROL XL [Concomitant]
     Active Substance: METOPROLOL SUCCINATE
  14. ATACAND [Concomitant]
     Active Substance: CANDESARTAN CILEXETIL
  15. NEURONTIN [Concomitant]
     Active Substance: GABAPENTIN
  16. VICTOZA [Concomitant]
     Active Substance: LIRAGLUTIDE
  17. INSULIN [Concomitant]
     Active Substance: INSULIN NOS
  18. ASPIRIN [ACETYLSALICYLIC ACID] [Concomitant]
     Active Substance: ASPIRIN

REACTIONS (3)
  - Unevaluable event [Unknown]
  - Muscle disorder [Unknown]
  - Blood glucose increased [Unknown]

NARRATIVE: CASE EVENT DATE: 20200622
